FAERS Safety Report 6154639-6 (Version None)
Quarter: 2009Q2

REPORT INFORMATION
  Report Type: 
  Country: None (occurrence: None)
  Receive Date: 20090414
  Receipt Date: 20090408
  Transmission Date: 20091009
  Serious: Yes (Hospitalization, Other)
  Sender: FDA-Public Use
  Company Number: US-ELI_LILLY_AND_COMPANY-US200902001131

PATIENT
  Sex: Male
  Weight: 158.73 kg

DRUGS (7)
  1. BYETTA [Suspect]
     Indication: TYPE 2 DIABETES MELLITUS
     Dosage: 5 UG, 2/D
     Route: 058
     Dates: start: 20080805, end: 20081101
  2. BYETTA [Suspect]
     Dosage: 10 UG, 2/D
     Route: 058
     Dates: start: 20081104, end: 20081117
  3. ACTOS [Concomitant]
     Dosage: 45 MG, DAILY (1/D)
     Dates: start: 20060906
  4. AMARYL [Concomitant]
     Dosage: 4 MG, 2/D
     Dates: start: 20050425
  5. LISINOPRIL [Concomitant]
     Dosage: 20 MG, DAILY (1/D)
     Dates: start: 20050725
  6. ASPIRIN [Concomitant]
     Dosage: UNK, DAILY (1/D)
     Dates: start: 20050131
  7. LIPITOR [Concomitant]
     Dosage: 10 MG, DAILY (1/D)
     Dates: start: 20060906

REACTIONS (1)
  - PANCREATITIS [None]
